FAERS Safety Report 6704385-2 (Version None)
Quarter: 2010Q2

REPORT INFORMATION
  Report Type: 
  Country: None (occurrence: None)
  Receive Date: 20100430
  Receipt Date: 20100419
  Transmission Date: 20101027
  Serious: Yes (Hospitalization)
  Sender: FDA-Public Use
  Company Number: GB-ELI_LILLY_AND_COMPANY-GB201004004660

PATIENT
  Age: 67 Year
  Sex: Male

DRUGS (10)
  1. PEMETREXED [Suspect]
     Dosage: 890 MG, DAY EVERY 3 WEEKS
     Route: 042
     Dates: start: 20091008
  2. DIAZEPAM [Concomitant]
     Indication: RELAXATION THERAPY
     Dosage: UNK, UNKNOWN
     Route: 065
     Dates: start: 20100323
  3. FENTANYL [Concomitant]
     Indication: BONE PAIN
     Dosage: UNK, UNKNOWN
     Route: 065
     Dates: start: 20100323
  4. ATROVENT [Concomitant]
     Indication: CHRONIC OBSTRUCTIVE PULMONARY DISEASE
     Dosage: UNK, UNKNOWN
     Route: 065
  5. SALBUTAMOL [Concomitant]
     Indication: CHRONIC OBSTRUCTIVE PULMONARY DISEASE
     Dosage: UNK, UNKNOWN
     Route: 065
  6. FOLIC ACID [Concomitant]
     Indication: PROPHYLAXIS
     Dosage: UNK, UNKNOWN
     Route: 065
     Dates: start: 20091001
  7. PARACETAMOL [Concomitant]
     Indication: ANALGESIC THERAPY
     Dosage: UNK, UNKNOWN
     Route: 065
     Dates: start: 20090901
  8. ORAMORPH SR [Concomitant]
     Indication: ANALGESIC THERAPY
     Dosage: UNK, UNKNOWN
     Route: 065
     Dates: start: 20100330
  9. ENOXAPARIN SODIUM [Concomitant]
     Indication: PULMONARY EMBOLISM
     Dosage: UNK, UNKNOWN
     Route: 058
     Dates: start: 20090901, end: 20100420
  10. DEXAMETHASONE [Concomitant]
     Indication: PAIN
     Dosage: UNK, UNKNOWN
     Route: 065
     Dates: start: 20100323

REACTIONS (6)
  - CONFUSIONAL STATE [None]
  - FALL [None]
  - INCONTINENCE [None]
  - LOWER RESPIRATORY TRACT INFECTION [None]
  - OEDEMA PERIPHERAL [None]
  - PANCYTOPENIA [None]
